FAERS Safety Report 7429031-4 (Version None)
Quarter: 2011Q2

REPORT INFORMATION
  Report Type: 
  Country: None (occurrence: None)
  Receive Date: 20110421
  Receipt Date: 20110420
  Transmission Date: 20111010
  Serious: Yes (Other)
  Sender: FDA-Public Use
  Company Number: CH-ROCHE-758790

PATIENT
  Age: 53 Year
  Sex: Female

DRUGS (1)
  1. BONIVA [Suspect]
     Dosage: FREQUENCY: SINGLE
     Route: 042
     Dates: start: 20101203, end: 20101203

REACTIONS (4)
  - DYSPNOEA [None]
  - MYALGIA [None]
  - BONE PAIN [None]
  - ARTHRALGIA [None]
